FAERS Safety Report 4321517-4 (Version None)
Quarter: 2004Q1

REPORT INFORMATION
  Report Type: 
  Country: None (occurrence: None)
  Receive Date: 20040322
  Receipt Date: 20030701
  Transmission Date: 20041129
  Serious: No
  Sender: FDA-Public Use
  Company Number: US-BRISTOL-MYERS SQUIBB COMPANY-12321378

PATIENT
  Age: 41 Year
  Sex: Female
  Weight: 83 kg

DRUGS (7)
  1. VAGISTAT-1 [Suspect]
     Indication: VAGINAL MYCOSIS
     Route: 067
     Dates: start: 20030501
  2. TRAMADOL HCL [Concomitant]
  3. TIZANIDINE HCL [Concomitant]
  4. CORZIDE [Concomitant]
  5. NAPROXEN [Concomitant]
  6. TRAZODONE HCL [Concomitant]
  7. KLOR-CON [Concomitant]

REACTIONS (1)
  - DRUG INEFFECTIVE [None]
